FAERS Safety Report 6733103-7 (Version None)
Quarter: 2010Q2

REPORT INFORMATION
  Report Type: 
  Country: None (occurrence: None)
  Receive Date: 20100518
  Receipt Date: 20100506
  Transmission Date: 20101027
  Serious: Yes (Death, Hospitalization, Other)
  Sender: FDA-Public Use
  Company Number: 2009AC000249

PATIENT
  Age: 67 Year
  Sex: Female
  Weight: 58.514 kg

DRUGS (61)
  1. DIGOXIN [Suspect]
     Indication: CARDIAC PACEMAKER INSERTION
     Dosage: 125 MCG;QD;PO
     Route: 048
     Dates: start: 20000322
  2. DIGOXIN [Suspect]
     Indication: HEART RATE IRREGULAR
     Dosage: 125 MCG;QD;PO
     Route: 048
     Dates: start: 20000322
  3. DIGOXIN [Suspect]
     Indication: LEFT VENTRICULAR DYSFUNCTION
     Dosage: 0.125 MG;QD;PO
     Route: 048
     Dates: start: 19900701, end: 20080501
  4. DIAZEPAM [Concomitant]
  5. WARFARIN SODIUM [Concomitant]
  6. CARVEDILOL [Concomitant]
  7. FUROSEMIDE [Concomitant]
  8. IPRATROPIUM [Concomitant]
  9. AMOXICILLIN [Concomitant]
  10. ZITHROMAX [Concomitant]
  11. BENZONATATE [Concomitant]
  12. PROPO-N/APAP [Concomitant]
  13. CEPHALEXIN [Concomitant]
  14. KETEK [Concomitant]
  15. PROMETHAZINE [Concomitant]
  16. DOXEPIN HCL [Concomitant]
  17. SKELAXIN [Concomitant]
  18. GLYCOLAX [Concomitant]
  19. CIPROFLOXACIN [Concomitant]
  20. COREG [Concomitant]
  21. SPIRONOLACTONE [Concomitant]
  22. CLOBETASOL PROPIONATE [Concomitant]
  23. POLYETH GLYC [Concomitant]
  24. TRAMADOL HCL [Concomitant]
  25. ACETAMINOPHEN AND HYDROCODONE BITARTRATE [Concomitant]
  26. DOCUSATE SOD [Concomitant]
  27. CELEBREX [Concomitant]
  28. CAPTOPRIL [Concomitant]
  29. .......................... [Concomitant]
  30. ...................................... [Concomitant]
  31. ................... [Concomitant]
  32. .................... [Concomitant]
  33. DARVOCET-N 100 [Concomitant]
  34. .............. [Concomitant]
  35. ............. [Concomitant]
  36. ............... [Concomitant]
  37. PROMETHAZINE [Concomitant]
  38. .............. [Concomitant]
  39. CAPTOPRIL [Concomitant]
  40. LASIX [Concomitant]
  41. COREG [Concomitant]
  42. COUMADIN [Concomitant]
  43. ANACIN [Concomitant]
  44. PROVENTIL [Concomitant]
  45. VALIUM [Concomitant]
  46. PREMARIN [Concomitant]
  47. CAPOTEN [Concomitant]
  48. ESTROGEN [Concomitant]
  49. NAMENDA [Concomitant]
  50. LORTAB [Concomitant]
  51. DILAUDID [Concomitant]
  52. TYLENOL [Concomitant]
  53. EXCEDRIN PM [Concomitant]
  54. ASPIRIN [Concomitant]
  55. ATROVENT [Concomitant]
  56. DIGIBIND [Concomitant]
  57. VANCOMYCIN [Concomitant]
  58. CEFEPIME [Concomitant]
  59. VITAMIN K TAB [Concomitant]
  60. IMIPENEM [Concomitant]
  61. MORPHINE [Concomitant]

REACTIONS (62)
  - ACUTE MYOCARDIAL INFARCTION [None]
  - AMNESIA [None]
  - ANXIETY [None]
  - ASTHENIA [None]
  - ATRIOVENTRICULAR BLOCK FIRST DEGREE [None]
  - BACK PAIN [None]
  - BASAL CELL CARCINOMA [None]
  - BLOOD CREATININE INCREASED [None]
  - BLOOD UREA INCREASED [None]
  - BUNDLE BRANCH BLOCK LEFT [None]
  - CARDIAC ENZYMES INCREASED [None]
  - CARDIAC FAILURE CONGESTIVE [None]
  - CARDIAC MURMUR [None]
  - CARDIOACTIVE DRUG LEVEL BELOW THERAPEUTIC [None]
  - CARDIOACTIVE DRUG LEVEL INCREASED [None]
  - CARDIOMYOPATHY [None]
  - CATARACT [None]
  - CEREBRAL ATROPHY [None]
  - CHOLECYSTITIS ACUTE [None]
  - CHOLECYSTITIS CHRONIC [None]
  - CHOLECYSTITIS INFECTIVE [None]
  - COAGULOPATHY [None]
  - CONFUSIONAL STATE [None]
  - CONSTIPATION [None]
  - DECREASED APPETITE [None]
  - DEHYDRATION [None]
  - DEMENTIA [None]
  - DILATATION VENTRICULAR [None]
  - DIZZINESS [None]
  - DYSPNOEA [None]
  - DYSURIA [None]
  - ECONOMIC PROBLEM [None]
  - EJECTION FRACTION DECREASED [None]
  - EMPHYSEMA [None]
  - FALL [None]
  - HAEMORRHOIDAL HAEMORRHAGE [None]
  - HYPERCOAGULATION [None]
  - INTERNATIONAL NORMALISED RATIO INCREASED [None]
  - LACRIMATION INCREASED [None]
  - LEFT VENTRICULAR DYSFUNCTION [None]
  - MASS [None]
  - MENTAL STATUS CHANGES [None]
  - METABOLIC ENCEPHALOPATHY [None]
  - MULTIPLE INJURIES [None]
  - PAIN [None]
  - PANCREATITIS [None]
  - PROTHROMBIN TIME PROLONGED [None]
  - PSEUDOMONAL SEPSIS [None]
  - PULMONARY MASS [None]
  - RENAL DISORDER [None]
  - RENAL FAILURE ACUTE [None]
  - ROAD TRAFFIC ACCIDENT [None]
  - SPINAL OSTEOARTHRITIS [None]
  - STAPHYLOCOCCAL INFECTION [None]
  - THERAPEUTIC AGENT TOXICITY [None]
  - URINARY TRACT INFECTION PSEUDOMONAL [None]
  - VASCULAR DEMENTIA [None]
  - VENTRICULAR EXTRASYSTOLES [None]
  - VENTRICULAR TACHYCARDIA [None]
  - VISION BLURRED [None]
  - WEIGHT DECREASED [None]
  - WHITE BLOOD CELL COUNT INCREASED [None]
